FAERS Safety Report 20746380 (Version 7)
Quarter: 2022Q3

REPORT INFORMATION
  Report Type: Report from Study
  Country: US (occurrence: US)
  Receive Date: 20220425
  Receipt Date: 20220917
  Transmission Date: 20221027
  Serious: Yes (Hospitalization)
  Sender: FDA-Public Use
  Company Number: US-NOVARTISPH-NVSC2022US092785

PATIENT
  Sex: Female

DRUGS (2)
  1. ENTRESTO [Suspect]
     Active Substance: SACUBITRIL\VALSARTAN
     Indication: Product used for unknown indication
     Dosage: 1 DOSAGE FORM, BID (24/26 MG)
     Route: 048
  2. POTASSIUM [Concomitant]
     Active Substance: POTASSIUM
     Indication: Product used for unknown indication
     Dosage: UNK
     Route: 065

REACTIONS (10)
  - Dyspnoea [Unknown]
  - Fluid retention [Recovering/Resolving]
  - Palpitations [Unknown]
  - Heart valve incompetence [Unknown]
  - Taste disorder [Recovered/Resolved]
  - Stress [Unknown]
  - Dehydration [Unknown]
  - Limb discomfort [Unknown]
  - Throat clearing [Unknown]
  - Dizziness [Unknown]
